FAERS Safety Report 20694773 (Version 7)
Quarter: 2023Q1

REPORT INFORMATION
  Report Type: Report from Study
  Country: US (occurrence: US)
  Receive Date: 20220411
  Receipt Date: 20230313
  Transmission Date: 20230418
  Serious: Yes (Hospitalization)
  Sender: FDA-Public Use
  Company Number: US-NOVARTISTESTPH-NVSC2022US080754

PATIENT
  Sex: Female
  Weight: 65 kg

DRUGS (9)
  1. TABRECTA [Suspect]
     Active Substance: CAPMATINIB
     Indication: Lung carcinoma cell type unspecified stage I
     Dosage: 2 DOSAGE FORM, BID (DOSE: 200 MG) (TAKE 2 TABLETS BY MOUTH TWICE DAILY WITH OR WITHOUT FOOD)
     Route: 048
     Dates: start: 20220325
  2. TABRECTA [Suspect]
     Active Substance: CAPMATINIB
     Dosage: 200 MG, BID (TAKE 1 TABLET BY MOUTH TWICE DAILY WITH OR WITHOUT FOOD)
     Route: 048
  3. ALENDRONATE [Concomitant]
     Active Substance: ALENDRONATE SODIUM
     Indication: Product used for unknown indication
     Dosage: 70 MG
     Route: 065
  4. ENALAPRIL/HYD [Concomitant]
     Indication: Product used for unknown indication
     Dosage: 12.5 MG (5-12.5 MG)
     Route: 065
  5. FAMOTIDINE [Concomitant]
     Active Substance: FAMOTIDINE
     Indication: Product used for unknown indication
     Dosage: 40 MG
     Route: 065
  6. MEMANTINE HCS [Concomitant]
     Indication: Product used for unknown indication
     Dosage: 5 MG
     Route: 065
  7. PRAMIPEXOLE [Concomitant]
     Active Substance: PRAMIPEXOLE
     Indication: Product used for unknown indication
     Dosage: 0.125 MG
     Route: 065
  8. ELIQUIS [Concomitant]
     Active Substance: APIXABAN
     Indication: Product used for unknown indication
     Dosage: 5 MG
     Route: 065
  9. MIRALAX [Concomitant]
     Active Substance: POLYETHYLENE GLYCOL 3350
     Indication: Product used for unknown indication
     Dosage: 17 MG/ SCOOP (POW)
     Route: 065

REACTIONS (16)
  - Breast pain [Unknown]
  - Fall [Unknown]
  - Sleep apnoea syndrome [Unknown]
  - Pleural effusion [Unknown]
  - Nausea [Unknown]
  - Constipation [Not Recovered/Not Resolved]
  - Oedema peripheral [Unknown]
  - Sputum discoloured [Not Recovered/Not Resolved]
  - Speech sound disorder [Not Recovered/Not Resolved]
  - Arthralgia [Not Recovered/Not Resolved]
  - Pain [Unknown]
  - Cough [Not Recovered/Not Resolved]
  - Back pain [Not Recovered/Not Resolved]
  - Peripheral swelling [Recovering/Resolving]
  - Product dose omission in error [Unknown]
  - Drug ineffective [Unknown]
